FAERS Safety Report 10305339 (Version 1)
Quarter: 2014Q3

REPORT INFORMATION
  Report Type: Spontaneous
  Country: US (occurrence: None)
  Receive Date: 20140711
  Receipt Date: 20140711
  Transmission Date: 20150326
  Serious: Yes (Life-Threatening, Hospitalization, Disabling)
  Sender: FDA-Public Use
  Company Number: None

PATIENT
  Age: 82 Year
  Sex: Male
  Weight: 99.79 kg

DRUGS (2)
  1. CIPROFLOXACIN. [Suspect]
     Active Substance: CIPROFLOXACIN
     Indication: URINARY TRACT INFECTION
     Dosage: VARIED, TAKEN BY MOUTH
     Route: 048
  2. LEVAQUIN [Suspect]
     Active Substance: LEVOFLOXACIN

REACTIONS (7)
  - Anxiety [None]
  - Muscular weakness [None]
  - General physical health deterioration [None]
  - Mitochondrial myopathy [None]
  - Hallucination [None]
  - Asthenia [None]
  - Peristalsis visible [None]

NARRATIVE: CASE EVENT DATE: 20100702
